FAERS Safety Report 6308892-6 (Version None)
Quarter: 2009Q3

REPORT INFORMATION
  Report Type: 
  Country: None (occurrence: None)
  Receive Date: 20090813
  Receipt Date: 20090327
  Transmission Date: 20100115
  Serious: No
  Sender: FDA-Public Use
  Company Number: US-ALLERGAN-0904179US

PATIENT
  Sex: Female

DRUGS (2)
  1. COMBIGAN [Suspect]
     Indication: GLAUCOMA
     Dosage: 1 GTT, QPM
     Route: 047
     Dates: start: 20090313
  2. TRAVATAN [Concomitant]
     Indication: GLAUCOMA
     Dosage: 1 GTT, QAM
     Dates: start: 20050101

REACTIONS (1)
  - OCULAR HYPERAEMIA [None]
